FAERS Safety Report 17733959 (Version 1)
Quarter: 2020Q2

REPORT INFORMATION
  Report Type: Spontaneous
  Country: US (occurrence: US)
  Receive Date: 20200501
  Receipt Date: 20200501
  Transmission Date: 20200714
  Serious: No
  Sender: FDA-Public Use
  Company Number: None

PATIENT
  Sex: Female

DRUGS (1)
  1. TROSPIUM ER [Suspect]
     Active Substance: TROSPIUM CHLORIDE

REACTIONS (1)
  - Hypertonic bladder [None]
